FAERS Safety Report 21531651 (Version 3)
Quarter: 2023Q1

REPORT INFORMATION
  Report Type: Report from Study
  Country: US (occurrence: US)
  Receive Date: 20221031
  Receipt Date: 20230105
  Transmission Date: 20230417
  Serious: Yes (Hospitalization)
  Sender: FDA-Public Use
  Company Number: US-BIOGEN-2022BI01165343

PATIENT
  Sex: Female

DRUGS (1)
  1. TYSABRI [Suspect]
     Active Substance: NATALIZUMAB
     Indication: Multiple sclerosis
     Route: 050
     Dates: start: 20180620

REACTIONS (6)
  - Panic attack [Unknown]
  - Nervousness [Unknown]
  - Anxiety [Unknown]
  - Anxiety [Unknown]
  - Depression [Unknown]
  - Impatience [Unknown]
